FAERS Safety Report 6633125-0 (Version None)
Quarter: 2010Q1

REPORT INFORMATION
  Report Type: 
  Country: None (occurrence: None)
  Receive Date: 20100312
  Receipt Date: 20090923
  Transmission Date: 20100710
  Serious: No
  Sender: FDA-Public Use
  Company Number: US-ABBOTT-09P-163-0599672-00

PATIENT
  Sex: Female

DRUGS (4)
  1. ERYTHROMYCIN STEARATE [Suspect]
     Indication: DRUG USE FOR UNKNOWN INDICATION
  2. AMOXICILLIN [Suspect]
     Indication: DRUG USE FOR UNKNOWN INDICATION
  3. BACTRIM [Suspect]
     Indication: DRUG USE FOR UNKNOWN INDICATION
  4. LEVAQUIN [Suspect]
     Indication: DRUG USE FOR UNKNOWN INDICATION

REACTIONS (1)
  - ADVERSE DRUG REACTION [None]
